FAERS Safety Report 14477609 (Version 1)
Quarter: 2018Q1

REPORT INFORMATION
  Report Type: Report from Study
  Country: US (occurrence: US)
  Receive Date: 20180201
  Receipt Date: 20180201
  Transmission Date: 20180509
  Serious: Yes (Death)
  Sender: FDA-Public Use
  Company Number: US-EXELIXIS-CABO-17010638

PATIENT
  Sex: Male

DRUGS (24)
  1. CHERATUSSIN [Concomitant]
     Active Substance: AMMONIUM CHLORIDE\DEXTROMETHORPHAN\SODIUM CITRATE
  2. CLONIDINE HCL [Concomitant]
     Active Substance: CLONIDINE HYDROCHLORIDE
  3. DIPHENOXYLATE [Concomitant]
     Active Substance: DIPHENOXYLATE
  4. CARVEDILOL. [Concomitant]
     Active Substance: CARVEDILOL
  5. LASIX [Concomitant]
     Active Substance: FUROSEMIDE
  6. REMERON [Concomitant]
     Active Substance: MIRTAZAPINE
  7. LOMOTIL [Concomitant]
     Active Substance: ATROPINE SULFATE\DIPHENOXYLATE HYDROCHLORIDE
  8. LORTAB [Concomitant]
     Active Substance: ACETAMINOPHEN\HYDROCODONE BITARTRATE
  9. NITROSTAT [Concomitant]
     Active Substance: NITROGLYCERIN
  10. ONDANSETRON HCL [Concomitant]
     Active Substance: ONDANSETRON HYDROCHLORIDE
  11. CABOMETYX [Suspect]
     Active Substance: CABOZANTINIB S-MALATE
     Indication: RENAL CANCER
     Dosage: 40 MG, QD
     Route: 048
     Dates: start: 20170727, end: 20170830
  12. ELIQUIS [Concomitant]
     Active Substance: APIXABAN
  13. ISOSORBIDE D [Concomitant]
  14. TRADJENTA [Concomitant]
     Active Substance: LINAGLIPTIN
  15. ATORVASTATIN [Concomitant]
     Active Substance: ATORVASTATIN
  16. CYPROHEPTADIN [Concomitant]
  17. HYDROXYZINE [Concomitant]
     Active Substance: HYDROXYZINE HYDROCHLORIDE
  18. POTASSIUM CHLORIDE. [Concomitant]
     Active Substance: POTASSIUM CHLORIDE
  19. CALCIUM 600 + D [Concomitant]
     Active Substance: CALCIUM\VITAMIN D
  20. ALLOPURINOL. [Concomitant]
     Active Substance: ALLOPURINOL
  21. COLCHICINE. [Concomitant]
     Active Substance: COLCHICINE
  22. FUROSEMIDE. [Concomitant]
     Active Substance: FUROSEMIDE
  23. HYDRALAZINE [Concomitant]
     Active Substance: HYDRALAZINE HYDROCHLORIDE
  24. REGLAN [Concomitant]
     Active Substance: METOCLOPRAMIDE HYDROCHLORIDE

REACTIONS (9)
  - Malignant neoplasm progression [Fatal]
  - Cardiomyopathy [Unknown]
  - Ascites [Unknown]
  - Hypomagnesaemia [Unknown]
  - Anaemia [Unknown]
  - Dehydration [Unknown]
  - Arthralgia [Unknown]
  - Pain in extremity [Unknown]
  - Hypokalaemia [Unknown]
